FAERS Safety Report 5676639-2 (Version None)
Quarter: 2008Q1

REPORT INFORMATION
  Report Type: 
  Country: None (occurrence: None)
  Receive Date: 20080324
  Receipt Date: 20080313
  Transmission Date: 20080703
  Serious: Yes (Disabling, Other)
  Sender: FDA-Public Use
  Company Number: US-BAYER-200816685NA

PATIENT
  Sex: Male

DRUGS (3)
  1. MAGNEVIST [Suspect]
     Indication: NUCLEAR MAGNETIC RESONANCE IMAGING
     Route: 042
     Dates: start: 20050527, end: 20050527
  2. OPTIMARK [Suspect]
     Indication: ANGIOGRAM
     Route: 042
     Dates: start: 20060727, end: 20060727
  3. OPTIMARK [Suspect]
     Route: 042
     Dates: start: 20060731, end: 20060731

REACTIONS (18)
  - ANXIETY [None]
  - ASTHENIA [None]
  - BLISTER [None]
  - ERYTHEMA [None]
  - GAIT DISTURBANCE [None]
  - GENERAL PHYSICAL HEALTH DETERIORATION [None]
  - INJURY [None]
  - JOINT STIFFNESS [None]
  - MOBILITY DECREASED [None]
  - MUSCLE TIGHTNESS [None]
  - NEPHROGENIC SYSTEMIC FIBROSIS [None]
  - OEDEMA PERIPHERAL [None]
  - PAIN [None]
  - PAIN IN EXTREMITY [None]
  - PEAU D'ORANGE [None]
  - SCAR [None]
  - SKIN DISCOLOURATION [None]
  - SKIN TIGHTNESS [None]
